FAERS Safety Report 6880958-1 (Version None)
Quarter: 2010Q3

REPORT INFORMATION
  Report Type: 
  Country: None (occurrence: None)
  Receive Date: 20100728
  Receipt Date: 20100716
  Transmission Date: 20110219
  Serious: Yes (Other)
  Sender: FDA-Public Use
  Company Number: US-PFIZER INC-2010089306

PATIENT
  Sex: Male

DRUGS (1)
  1. CHANTIX [Suspect]
     Dosage: UNK
     Route: 048

REACTIONS (3)
  - AGGRESSION [None]
  - PHYSICAL ASSAULT [None]
  - SUICIDE ATTEMPT [None]
